FAERS Safety Report 7378476-X (Version None)
Quarter: 2011Q1

REPORT INFORMATION
  Report Type: 
  Country: None (occurrence: None)
  Receive Date: 20110323
  Receipt Date: 20110323
  Transmission Date: 20110831
  Serious: Yes (Other)
  Sender: FDA-Public Use
  Company Number: None

PATIENT
  Sex: Female
  Weight: 4.1 kg

DRUGS (2)
  1. ACYCLOVIR [Suspect]
     Dosage: 80 MG Q8H IV DRIP  8 DOSES
     Route: 041
     Dates: start: 20110311, end: 20110314
  2. ACYCLOVIR [Suspect]

REACTIONS (4)
  - ELECTROCARDIOGRAM T WAVE AMPLITUDE DECREASED [None]
  - ELECTROCARDIOGRAM ST SEGMENT DEPRESSION [None]
  - SINUS TACHYCARDIA [None]
  - LETHARGY [None]
